FAERS Safety Report 9288983 (Version 1)
Quarter: 2013Q2

REPORT INFORMATION
  Report Type: Spontaneous
  Country: DE (occurrence: DE)
  Receive Date: 20130514
  Receipt Date: 20130514
  Transmission Date: 20140414
  Serious: Yes (Hospitalization)
  Sender: FDA-Public Use
  Company Number: DE-GLAXOSMITHKLINE-D0079724A

PATIENT
  Age: 0 Year
  Sex: Female
  Weight: 3.4 kg

DRUGS (1)
  1. PAROXETIN [Suspect]
     Indication: DEPRESSION
     Dosage: 20MG PER DAY
     Route: 064
     Dates: start: 20120228, end: 20121206

REACTIONS (5)
  - Neonatal respiratory distress syndrome [Recovered/Resolved]
  - Opisthotonus [Recovering/Resolving]
  - Hypertriglyceridaemia [Recovered/Resolved]
  - Congenital choroid plexus cyst [Unknown]
  - Dyskinesia [Recovered/Resolved]
